FAERS Safety Report 11900550 (Version 1)
Quarter: 2016Q1

REPORT INFORMATION
  Report Type: Spontaneous
  Country: US (occurrence: US)
  Receive Date: 20160108
  Receipt Date: 20160108
  Transmission Date: 20160526
  Serious: Yes (Hospitalization)
  Sender: FDA-Public Use
  Company Number: US-DSJP-DSU-2015-134283

PATIENT

DRUGS (3)
  1. BENICAR [Suspect]
     Active Substance: OLMESARTAN MEDOXOMIL
     Indication: HYPERTENSION
     Dosage: 20 MG, UNK
     Dates: start: 200604, end: 200612
  2. BENICAR HCT [Suspect]
     Active Substance: HYDROCHLOROTHIAZIDE\OLMESARTAN MEDOXOMIL
     Indication: HYPERTENSION
     Dosage: 40/12.5 MG
     Dates: start: 200612, end: 201204
  3. BENICAR HCT [Suspect]
     Active Substance: HYDROCHLOROTHIAZIDE\OLMESARTAN MEDOXOMIL
     Dosage: 40/25 MG ONCE DAILY

REACTIONS (10)
  - Pancreatitis [Unknown]
  - Diverticulum [Unknown]
  - Granuloma [Unknown]
  - Diabetic ketoacidosis [Unknown]
  - Gastritis [Unknown]
  - Anxiety [Unknown]
  - Impaired gastric emptying [Unknown]
  - Hypovolaemia [Unknown]
  - Malabsorption [Unknown]
  - Pyrexia [Unknown]

NARRATIVE: CASE EVENT DATE: 200604
